FAERS Safety Report 7754792-4 (Version None)
Quarter: 2011Q3

REPORT INFORMATION
  Report Type: 
  Country: None (occurrence: None)
  Receive Date: 20110916
  Receipt Date: 20110908
  Transmission Date: 20111222
  Serious: Yes (Hospitalization, Other)
  Sender: FDA-Public Use
  Company Number: 2007BI021420

PATIENT
  Age: 50 Year
  Sex: Female

DRUGS (2)
  1. TYSABRI [Suspect]
     Route: 042
     Dates: start: 20110613
  2. TYSABRI [Suspect]
     Indication: MULTIPLE SCLEROSIS
     Route: 042
     Dates: start: 20070711, end: 20081023

REACTIONS (8)
  - MULTIPLE SCLEROSIS RELAPSE [None]
  - VISUAL ACUITY REDUCED [None]
  - MYOCARDIAL INFARCTION [None]
  - VASCULAR ACCESS COMPLICATION [None]
  - BRAIN NEOPLASM [None]
  - POSTOPERATIVE THROMBOSIS [None]
  - AMNESIA [None]
  - VEIN DISORDER [None]
